FAERS Safety Report 23470269 (Version 1)
Quarter: 2024Q1

REPORT INFORMATION
  Report Type: Spontaneous
  Country: US (occurrence: None)
  Receive Date: 20240202
  Receipt Date: 20240202
  Transmission Date: 20240410
  Serious: No
  Sender: FDA-Public Use
  Company Number: None

PATIENT
  Age: 70 Year
  Sex: Male
  Weight: 108 kg

DRUGS (8)
  1. CYCLOPHOSPHAMIDE [Suspect]
     Active Substance: CYCLOPHOSPHAMIDE
     Dates: end: 20231026
  2. CYTARABINE [Suspect]
     Active Substance: CYTARABINE
     Dates: end: 20231118
  3. DEXAMETHASONE [Suspect]
     Active Substance: DEXAMETHASONE
     Dates: end: 20231118
  4. DOXORUBICIN HYDROCHLORIDE [Suspect]
     Active Substance: DOXORUBICIN HYDROCHLORIDE
     Dates: end: 20231029
  5. MESNA [Suspect]
     Active Substance: MESNA
     Dates: end: 20231026
  6. METHOTREXATE [Suspect]
     Active Substance: METHOTREXATE
     Dates: end: 20231117
  7. PONATINIB [Suspect]
     Active Substance: PONATINIB
     Dates: end: 20231123
  8. VINCRISTINE SULFATE [Suspect]
     Active Substance: VINCRISTINE SULFATE
     Dates: end: 20231107

REACTIONS (4)
  - Neutrophil count decreased [None]
  - White blood cell count decreased [None]
  - Lymphocyte count decreased [None]
  - Platelet count decreased [None]

NARRATIVE: CASE EVENT DATE: 20231124
